FAERS Safety Report 7916671-9 (Version None)
Quarter: 2011Q4

REPORT INFORMATION
  Report Type: 
  Country: None (occurrence: None)
  Receive Date: 20111116
  Receipt Date: 20111018
  Transmission Date: 20120403
  Serious: No
  Sender: FDA-Public Use
  Company Number: US-BAYER-2011-110295

PATIENT
  Age: 16 Year
  Sex: Female
  Weight: 48.526 kg

DRUGS (1)
  1. NATAZIA [Suspect]
     Dosage: UNK
     Route: 048
     Dates: start: 20110401

REACTIONS (2)
  - WEIGHT DECREASED [None]
  - DECREASED APPETITE [None]
